FAERS Safety Report 5591420-0 (Version None)
Quarter: 2008Q1

REPORT INFORMATION
  Report Type: 
  Country: None (occurrence: None)
  Receive Date: 20080111
  Receipt Date: 20080107
  Transmission Date: 20080703
  Serious: Yes (Other)
  Sender: FDA-Public Use
  Company Number: CERZ-11850

PATIENT
  Age: 70 Year
  Sex: Female
  Weight: 88 kg

DRUGS (1)
  1. CEREZYME [Suspect]
     Indication: GAUCHER'S DISEASE
     Dosage: 4400 U, Q3W, INTRAVENOUS
     Route: 042
     Dates: start: 19970418

REACTIONS (2)
  - BLOOD URIC ACID INCREASED [None]
  - CAROTID ARTERY OCCLUSION [None]
